FAERS Safety Report 16410752 (Version 1)
Quarter: 2019Q2

REPORT INFORMATION
  Report Type: Other
  Country: GB (occurrence: GB)
  Receive Date: 20190610
  Receipt Date: 20190610
  Transmission Date: 20190711
  Serious: Yes (Other)
  Sender: FDA-Public Use
  Company Number: GB-HERITAGE PHARMACEUTICALS-2019HTG00257

PATIENT
  Age: 72 Year
  Sex: Male
  Weight: 78 kg

DRUGS (5)
  1. SILDENAFIL. [Concomitant]
     Active Substance: SILDENAFIL
     Dosage: 1 DOSAGE UNITS, AS NEEDED
     Dates: start: 20180718
  2. CANDESARTAN. [Concomitant]
     Active Substance: CANDESARTAN
     Dosage: 1 DOSAGE UNITS, 1X/DAY
     Dates: start: 20190131
  3. CO-CARELDOPA [Concomitant]
     Active Substance: CARBIDOPA\LEVODOPA
     Dosage: 3 DOSAGE UNITS, 1X/DAY
     Dates: start: 20181017
  4. FELODIPINE. [Suspect]
     Active Substance: FELODIPINE
     Dosage: 2.5 MG, 1X/DAY
     Dates: start: 20190320, end: 20190321
  5. OMEPRAZOLE. [Concomitant]
     Active Substance: OMEPRAZOLE
     Dosage: UNK
     Dates: start: 20190131

REACTIONS (1)
  - Joint swelling [Unknown]
